FAERS Safety Report 6704455-9 (Version None)
Quarter: 2010Q2

REPORT INFORMATION
  Report Type: 
  Country: None (occurrence: None)
  Receive Date: 20100430
  Receipt Date: 20100317
  Transmission Date: 20101027
  Serious: Yes (Other)
  Sender: FDA-Public Use
  Company Number: US-JNJFOC-20100306382

PATIENT
  Age: 76 Year
  Sex: Female

DRUGS (4)
  1. TYLENOL-500 [Suspect]
     Route: 048
  2. TYLENOL-500 [Suspect]
     Indication: LOCALISED INFECTION
     Route: 048
  3. TYLENOL-500 [Suspect]
     Route: 065
  4. TYLENOL-500 [Suspect]
     Indication: LOCALISED INFECTION
     Route: 065

REACTIONS (1)
  - HALLUCINATION [None]
